FAERS Safety Report 7363377-3 (Version None)
Quarter: 2011Q1

REPORT INFORMATION
  Report Type: 
  Country: None (occurrence: None)
  Receive Date: 20110321
  Receipt Date: 20110217
  Transmission Date: 20110831
  Serious: Yes (Hospitalization, Other)
  Sender: FDA-Public Use
  Company Number: US-BAYER-201032403NA

PATIENT
  Sex: Female
  Weight: 81.633 kg

DRUGS (11)
  1. ALBUTEROL INHALER [Concomitant]
     Dosage: 2 PUFF(S), Q4HR, PRN
  2. NITROFURANTOIN [Concomitant]
     Dosage: 100 MG, BID
     Route: 048
     Dates: start: 20080731, end: 20080906
  3. CIPROFLOXACIN [Concomitant]
     Dosage: 500 MG, BID
     Route: 048
     Dates: start: 20080809, end: 20080818
  4. LOVENOX [Concomitant]
     Dosage: 0.8 ML, UNK
     Route: 058
     Dates: start: 20080814
  5. YAZ [Suspect]
     Indication: CONTRACEPTION
     Dosage: UNK UNK, QD
     Route: 048
     Dates: start: 20080704, end: 20080807
  6. SULFAMETHOXAZOLE AND TRIMETHOPRIM [Concomitant]
     Dosage: 800/160 MG, BID
     Route: 048
     Dates: start: 20080808
  7. WARFARIN SODIUM [Concomitant]
     Dosage: 5 MG, QD
     Route: 048
     Dates: start: 20080817
  8. ASPIRIN [Concomitant]
     Dosage: 81 MG, QD
     Route: 048
  9. COUMADIN [Concomitant]
     Dosage: UNK
     Dates: start: 20080817
  10. MOTRIN [Concomitant]
     Dosage: UNK UNK, PRN
  11. WARFARIN SODIUM [Concomitant]
     Dosage: 5 MG, 1 TAB EVERYDAY AND 1/2 TABS ONE DAY PER WEEK
     Dates: start: 20080819

REACTIONS (7)
  - FLANK PAIN [None]
  - ASTHMA [None]
  - PULMONARY EMBOLISM [None]
  - CHRONIC OBSTRUCTIVE PULMONARY DISEASE [None]
  - PNEUMONIA [None]
  - PHLEBITIS [None]
  - OEDEMA PERIPHERAL [None]
